FAERS Safety Report 5108282-8 (Version None)
Quarter: 2006Q3

REPORT INFORMATION
  Report Type: 
  Country: None (occurrence: None)
  Receive Date: 20060919
  Receipt Date: 20060606
  Transmission Date: 20061208
  Serious: Yes (Other)
  Sender: FDA-Public Use
  Company Number: US-BRISTOL-MYERS SQUIBB COMPANY-13402417

PATIENT
  Age: 71 Year
  Sex: Female
  Weight: 72 kg

DRUGS (6)
  1. MEGESTROL ACETATE [Suspect]
     Indication: ENDOMETRIAL CANCER
     Dates: start: 20021101, end: 20030101
  2. MORPHINE [Concomitant]
  3. WELLBUTRIN [Concomitant]
  4. SENNA [Concomitant]
  5. MULTI-VITAMIN [Concomitant]
  6. RADIATION THERAPY [Concomitant]

REACTIONS (5)
  - ADRENAL INSUFFICIENCY [None]
  - ALOPECIA [None]
  - AMNESIA [None]
  - DYSPNOEA [None]
  - OEDEMA PERIPHERAL [None]
